FAERS Safety Report 17488456 (Version 1)
Quarter: 2020Q1

REPORT INFORMATION
  Report Type: Spontaneous
  Country: US (occurrence: US)
  Receive Date: 20200220
  Receipt Date: 20200220
  Transmission Date: 20200409
  Serious: Yes (Other)
  Sender: FDA-Public Use
  Company Number: None

PATIENT
  Age: 43 Year
  Sex: Male
  Weight: 86.18 kg

DRUGS (1)
  1. GLEEVEC [Suspect]
     Active Substance: IMATINIB MESYLATE
     Indication: BONE CANCER
     Route: 048
     Dates: start: 20200128

REACTIONS (2)
  - Therapy change [None]
  - Abdominal pain upper [None]

NARRATIVE: CASE EVENT DATE: 20200220
